FAERS Safety Report 10314562 (Version 2)
Quarter: 2014Q4

REPORT INFORMATION
  Report Type: Spontaneous
  Country: IT (occurrence: IT)
  Receive Date: 20140718
  Receipt Date: 20141030
  Transmission Date: 20150528
  Serious: Yes (Hospitalization)
  Sender: FDA-Public Use
  Company Number: IT-PFIZER INC-2014201007

PATIENT
  Age: 48 Year
  Sex: Female

DRUGS (6)
  1. PROTIADENE [Suspect]
     Active Substance: DOTHIEPIN HYDROCHLORIDE
     Indication: INTENTIONAL SELF-INJURY
     Dosage: 1 UNIT
     Route: 048
  2. ALPRAZOLAM. [Suspect]
     Active Substance: ALPRAZOLAM
     Indication: INTENTIONAL SELF-INJURY
     Dosage: 1 UNIT
     Route: 048
  3. ALPRAZOLAM. [Suspect]
     Active Substance: ALPRAZOLAM
     Dosage: UNK
     Route: 048
     Dates: start: 20140405, end: 20140405
  4. PROTIADENE [Suspect]
     Active Substance: DOTHIEPIN HYDROCHLORIDE
     Dosage: UNK
     Route: 048
     Dates: start: 20140405, end: 20140405
  5. DIFMETRE [Suspect]
     Active Substance: CAFFEINE\INDOMETHACIN\PROCHLORPERAZINE MALEATE
     Dosage: UNK
     Route: 048
     Dates: start: 20140405, end: 20140405
  6. DIFMETRE [Suspect]
     Active Substance: CAFFEINE\INDOMETHACIN\PROCHLORPERAZINE MALEATE
     Indication: INTENTIONAL SELF-INJURY
     Dosage: 1 UNIT
     Route: 048

REACTIONS (2)
  - Drug abuse [Recovering/Resolving]
  - Depressed level of consciousness [Recovering/Resolving]

NARRATIVE: CASE EVENT DATE: 20140405
